FAERS Safety Report 14431816 (Version 8)
Quarter: 2018Q4

REPORT INFORMATION
  Report Type: Spontaneous
  Country: GB (occurrence: GB)
  Receive Date: 20180124
  Receipt Date: 20181220
  Transmission Date: 20190204
  Serious: Yes (Hospitalization, Other)
  Sender: FDA-Public Use
  Company Number: GB-PFIZER INC-2018031245

PATIENT
  Age: 48 Year
  Sex: Male

DRUGS (2)
  1. OMEPRAZOLE. [Suspect]
     Active Substance: OMEPRAZOLE
     Dosage: 20 MG, DAILY (LONG-TERM)
  2. IBUPROFEN. [Suspect]
     Active Substance: IBUPROFEN
     Indication: BACK PAIN
     Dosage: 800 MG, 4X/DAY (SHORT-COURSE HIGH-DOSE)

REACTIONS (3)
  - Overdose [Unknown]
  - Jejunal ulcer perforation [Recovered/Resolved]
  - Peritonitis [Recovered/Resolved]
